FAERS Safety Report 11758565 (Version 2)
Quarter: 2015Q4

REPORT INFORMATION
  Report Type: Report from Study
  Country: JP (occurrence: JP)
  Receive Date: 20151120
  Receipt Date: 20151214
  Transmission Date: 20160304
  Serious: Yes (Other)
  Sender: FDA-Public Use
  Company Number: JP-ASTELLAS-2015JP023146

PATIENT
  Age: 78 Year
  Sex: Female
  Weight: 42 kg

DRUGS (27)
  1. MAGLAX [Concomitant]
     Active Substance: MAGNESIUM OXIDE
     Indication: CONSTIPATION
     Route: 048
     Dates: end: 20150721
  2. RAKOOL REISHIPPU [Concomitant]
     Indication: FOOT FRACTURE
     Route: 062
     Dates: start: 20151028, end: 20151030
  3. BETANIS [Suspect]
     Active Substance: MIRABEGRON
     Indication: HYPERTONIC BLADDER
     Route: 048
     Dates: start: 20150424, end: 20150617
  4. RINDERON                           /00008501/ [Concomitant]
     Active Substance: BETAMETHASONE
     Indication: PSORIASIS
     Dosage: 0.5 MG, TWICE DAILY
     Route: 048
  5. TRAMAL [Concomitant]
     Active Substance: TRAMADOL
     Indication: FOOT FRACTURE
     Route: 048
     Dates: start: 20151120
  6. MIRABEGRON [Suspect]
     Active Substance: MIRABEGRON
     Indication: HYPERTONIC BLADDER
     Dosage: 50 MG, ONCE DAILY, AFTER BREAKFAST
     Route: 048
     Dates: start: 20150618, end: 20151209
  7. EPINASTINE HYDROCHLORIDE. [Concomitant]
     Active Substance: EPINASTINE HYDROCHLORIDE
     Indication: RHINITIS ALLERGIC
     Route: 048
  8. FAMOTIDINE. [Concomitant]
     Active Substance: FAMOTIDINE
     Indication: PSORIASIS
     Route: 048
  9. HIRUDOID                           /00723701/ [Concomitant]
     Indication: FOOT FRACTURE
     Dosage: OPTIMAL DOSE, AS NEEDED
     Route: 061
     Dates: start: 20151116, end: 20151207
  10. SENNA [Concomitant]
     Active Substance: SENNA LEAF\SENNOSIDES\SENNOSIDES A AND B
     Indication: CONSTIPATION
     Dosage: 0.5 G, ONCE DAILY
     Route: 048
  11. MAGLAX [Concomitant]
     Active Substance: MAGNESIUM OXIDE
     Route: 048
     Dates: start: 20150722
  12. TRAMAL [Concomitant]
     Active Substance: TRAMADOL
     Indication: LIGAMENT SPRAIN
  13. TERPERAN [Concomitant]
     Active Substance: METOCLOPRAMIDE HYDROCHLORIDE
     Indication: PROPHYLAXIS OF NAUSEA AND VOMITING
     Route: 048
     Dates: start: 20151120
  14. LORCAM [Concomitant]
     Active Substance: LORNOXICAM
     Indication: LIGAMENT SPRAIN
  15. EDIROL [Concomitant]
     Active Substance: ELDECALCITOL
     Indication: OSTEOPOROSIS
     Dosage: 0.75 ?G, ONCE DAILY
     Route: 048
  16. LORCAM [Concomitant]
     Active Substance: LORNOXICAM
     Indication: FOOT FRACTURE
     Dosage: 4-12 MG, AS NEEDED
     Route: 048
     Dates: start: 20151102, end: 20151120
  17. REBAMIPIDE [Concomitant]
     Active Substance: REBAMIPIDE
     Indication: LIGAMENT SPRAIN
  18. HIRUDOID                           /00723701/ [Concomitant]
     Indication: LIGAMENT SPRAIN
  19. VOLTAREN [Concomitant]
     Active Substance: DICLOFENAC SODIUM
     Indication: FOOT FRACTURE
     Route: 048
     Dates: start: 20151120, end: 20151123
  20. VESICARE [Suspect]
     Active Substance: SOLIFENACIN SUCCINATE
     Indication: HYPERTONIC BLADDER
     Dosage: 5 MG, ONCE DAILY, AFTER BREAKFAST
     Route: 048
     Dates: start: 20150709, end: 20151209
  21. ZOLPIDEM TARTRATE. [Concomitant]
     Active Substance: ZOLPIDEM TARTRATE
     Indication: INSOMNIA
     Route: 048
  22. RAKOOL REISHIPPU [Concomitant]
     Indication: LIGAMENT SPRAIN
  23. ROHYPNOL [Concomitant]
     Active Substance: FLUNITRAZEPAM
     Indication: INSOMNIA
     Dosage: 0.5 MG, ONCE DAILY
     Route: 048
  24. ASPARA-CA [Concomitant]
     Active Substance: CALCIUM ASPARTATE
     Indication: OSTEOPOROSIS
     Route: 048
     Dates: start: 20150702
  25. ACTONEL [Concomitant]
     Active Substance: RISEDRONATE SODIUM
     Indication: OSTEOPOROSIS
     Route: 048
     Dates: start: 20150811
  26. REBAMIPIDE [Concomitant]
     Active Substance: REBAMIPIDE
     Indication: FOOT FRACTURE
     Dosage: 100-300 MG, AS NEEDED
     Route: 048
     Dates: start: 20151102, end: 20151120
  27. VOLTAREN [Concomitant]
     Active Substance: DICLOFENAC SODIUM
     Indication: LIGAMENT SPRAIN

REACTIONS (3)
  - Foot fracture [Recovering/Resolving]
  - Constipation [Not Recovered/Not Resolved]
  - Ligament sprain [Recovering/Resolving]

NARRATIVE: CASE EVENT DATE: 20151028
